FAERS Safety Report 19022059 (Version 1)
Quarter: 2021Q1

REPORT INFORMATION
  Report Type: Spontaneous
  Country: US (occurrence: US)
  Receive Date: 20210317
  Receipt Date: 20210317
  Transmission Date: 20210420
  Serious: No
  Sender: FDA-Public Use
  Company Number: US-ABBVIE-20K-163-3570858-00

PATIENT
  Age: 72 Year
  Sex: Female
  Weight: 81.72 kg

DRUGS (3)
  1. RINVOQ [Suspect]
     Active Substance: UPADACITINIB
     Indication: RHEUMATOID ARTHRITIS
     Route: 048
     Dates: start: 20200813, end: 202008
  2. RINVOQ [Suspect]
     Active Substance: UPADACITINIB
     Route: 048
     Dates: start: 20200821
  3. PREDNISONE. [Concomitant]
     Active Substance: PREDNISONE
     Indication: CHRONIC OBSTRUCTIVE PULMONARY DISEASE

REACTIONS (6)
  - Urinary tract infection [Not Recovered/Not Resolved]
  - Swelling [Recovering/Resolving]
  - Pain [Recovering/Resolving]
  - Product packaging quantity issue [Recovered/Resolved]
  - Hypoaesthesia [Recovering/Resolving]
  - Product label issue [Recovered/Resolved]

NARRATIVE: CASE EVENT DATE: 202008
